FAERS Safety Report 5156900-0 (Version None)
Quarter: 2006Q4

REPORT INFORMATION
  Report Type: 
  Country: None (occurrence: None)
  Receive Date: 20060918
  Receipt Date: 20060711
  Transmission Date: 20070319
  Serious: Yes (Other)
  Sender: FDA-Public Use
  Company Number: US-JNJFOC-20060702518

PATIENT
  Age: 10 Year
  Sex: Male
  Weight: 38.5557 kg

DRUGS (5)
  1. TOPAMAX [Suspect]
     Indication: TUBEROUS SCLEROSIS
     Dosage: 350 MG IN 1 DAY ORAL
     Route: 048
  2. TRILEPTAL [Concomitant]
  3. NITRAZEPAM [Concomitant]
  4. CLONIDINE [Concomitant]
  5. PROZAC [Concomitant]

REACTIONS (3)
  - AGGRESSION [None]
  - COMPLEX PARTIAL SEIZURES [None]
  - PETIT MAL EPILEPSY [None]
